FAERS Safety Report 19973240 (Version 2)
Quarter: 2021Q4

REPORT INFORMATION
  Report Type: Report from Study
  Country: EG (occurrence: EG)
  Receive Date: 20211020
  Receipt Date: 20211028
  Transmission Date: 20220303
  Serious: Yes (Other)
  Sender: FDA-Public Use
  Company Number: NVSC2021EG236226

PATIENT
  Sex: Female

DRUGS (2)
  1. GLIVEC [Suspect]
     Active Substance: IMATINIB MESYLATE
     Indication: Chronic myeloid leukaemia
     Dosage: 1 DF, QD
     Route: 048
  2. EXAMIDE [Concomitant]
     Indication: Hypertension
     Dosage: UNK
     Route: 065

REACTIONS (6)
  - Limb discomfort [Recovering/Resolving]
  - Fluid retention [Recovering/Resolving]
  - Swelling [Recovering/Resolving]
  - Polymerase chain reaction [Recovered/Resolved]
  - Bone pain [Not Recovered/Not Resolved]
  - Movement disorder [Not Recovered/Not Resolved]

NARRATIVE: CASE EVENT DATE: 20160101
